FAERS Safety Report 10409433 (Version 2)
Quarter: 2014Q3

REPORT INFORMATION
  Report Type: Spontaneous
  Country: US (occurrence: US)
  Receive Date: 20140826
  Receipt Date: 20140826
  Transmission Date: 20150326
  Serious: No
  Sender: FDA-Public Use
  Company Number: US-ELI_LILLY_AND_COMPANY-US201406007085

PATIENT
  Sex: Male
  Weight: 95.24 kg

DRUGS (10)
  1. VITAMIN B12 [Concomitant]
     Active Substance: CYANOCOBALAMIN
     Dosage: UNK
     Dates: start: 20131226
  2. FLUTICASONE [Concomitant]
     Active Substance: FLUTICASONE\FLUTICASONE PROPIONATE
     Route: 045
  3. BACTRIM [Concomitant]
     Active Substance: SULFAMETHOXAZOLE\TRIMETHOPRIM
     Indication: POLLAKIURIA
  4. MARINOL [Concomitant]
     Active Substance: DRONABINOL
     Indication: APPETITE DISORDER
  5. ALIMTA [Suspect]
     Active Substance: PEMETREXED DISODIUM
     Indication: LUNG ADENOCARCINOMA
     Dosage: 500 MG/M2, UNKNOWN
     Dates: start: 20140109
  6. HYZAAR [Concomitant]
     Active Substance: HYDROCHLOROTHIAZIDE\LOSARTAN POTASSIUM
  7. CARBOPLATIN. [Suspect]
     Active Substance: CARBOPLATIN
     Indication: LUNG ADENOCARCINOMA
  8. CLARITIN [Concomitant]
     Active Substance: LORATADINE
  9. FOLIC ACID. [Concomitant]
     Active Substance: FOLIC ACID
     Dosage: UNK
     Dates: start: 20140109
  10. AMBIEN CR [Concomitant]
     Active Substance: ZOLPIDEM TARTRATE

REACTIONS (3)
  - Oedema [Unknown]
  - Pollakiuria [Unknown]
  - Off label use [Recovered/Resolved]
